FAERS Safety Report 6014035-9 (Version None)
Quarter: 2008Q4

REPORT INFORMATION
  Report Type: 
  Country: None (occurrence: None)
  Receive Date: 20081219
  Receipt Date: 20071203
  Transmission Date: 20090506
  Serious: No
  Sender: FDA-Public Use
  Company Number: A0692262A

PATIENT
  Age: 70 Year
  Sex: Male
  Weight: 94.1 kg

DRUGS (10)
  1. AVODART [Suspect]
     Dosage: .5MG PER DAY
     Route: 048
     Dates: start: 20061201, end: 20071001
  2. DIOVAN [Concomitant]
  3. VYTORIN [Concomitant]
  4. DIGITEK [Concomitant]
  5. NEXIUM [Concomitant]
  6. XANAX [Concomitant]
  7. COUMADIN [Concomitant]
  8. PLAVIX [Concomitant]
  9. TOPROL-XL [Concomitant]
  10. NORVASC [Concomitant]

REACTIONS (2)
  - MUSCLE FATIGUE [None]
  - PANIC ATTACK [None]
